FAERS Safety Report 4679689-8 (Version None)
Quarter: 2005Q2

REPORT INFORMATION
  Report Type: 
  Country: None (occurrence: None)
  Receive Date: 20050531
  Receipt Date: 20050516
  Transmission Date: 20051028
  Serious: Yes (Death, Other)
  Sender: FDA-Public Use
  Company Number: 2004052118

PATIENT
  Age: 20 Year
  Sex: Male

DRUGS (4)
  1. NEURONTIN [Suspect]
     Indication: DEPRESSION
     Dates: start: 20001101
  2. NEURONTIN [Suspect]
     Indication: SLEEP DISORDER
     Dates: start: 20001101
  3. EFFEXOR XR [Concomitant]
  4. RISPERDAL [Concomitant]

REACTIONS (19)
  - ACUTE RESPIRATORY DISTRESS SYNDROME [None]
  - ANOXIC ENCEPHALOPATHY [None]
  - ANXIETY [None]
  - APNOEA [None]
  - BRAIN OEDEMA [None]
  - CARDIAC ARREST [None]
  - COMPLETED SUICIDE [None]
  - DEPRESSION [None]
  - INJURY ASPHYXIATION [None]
  - PAIN [None]
  - PNEUMOMEDIASTINUM [None]
  - PNEUMONIA ASPIRATION [None]
  - PNEUMONITIS [None]
  - RESPIRATORY ARREST [None]
  - RESPIRATORY FAILURE [None]
  - SOFT TISSUE INJURY [None]
  - SUICIDAL IDEATION [None]
  - VICTIM OF CRIME [None]
  - VOMITING [None]
